FAERS Safety Report 17061793 (Version 4)
Quarter: 2020Q1

REPORT INFORMATION
  Report Type: Report from Study
  Country: US (occurrence: US)
  Receive Date: 20191121
  Receipt Date: 20200113
  Transmission Date: 20200409
  Serious: Yes (Death, Hospitalization)
  Sender: FDA-Public Use
  Company Number: US-ACTELION-A-US2019-186899

PATIENT
  Age: 45 Year
  Sex: Female
  Weight: 59.41 kg

DRUGS (16)
  1. IRON [Concomitant]
     Active Substance: IRON
  2. LISINOPRIL. [Concomitant]
     Active Substance: LISINOPRIL
  3. POTASSIUM [Concomitant]
     Active Substance: POTASSIUM
  4. PRILOSEC [Concomitant]
     Active Substance: OMEPRAZOLE MAGNESIUM
  5. VITAMIN C [Concomitant]
     Active Substance: ASCORBIC ACID
  6. ADCIRCA [Concomitant]
     Active Substance: TADALAFIL
  7. GABAPENTIN. [Concomitant]
     Active Substance: GABAPENTIN
  8. PREDNISONE. [Concomitant]
     Active Substance: PREDNISONE
  9. UPTRAVI [Suspect]
     Active Substance: SELEXIPAG
     Indication: PULMONARY HYPERTENSION
     Route: 048
  10. OPSUMIT [Suspect]
     Active Substance: MACITENTAN
     Indication: PULMONARY HYPERTENSION
     Dosage: 10 MG, QD
     Route: 048
     Dates: start: 20161109
  11. BENLYSTA [Concomitant]
     Active Substance: BELIMUMAB
  12. LASIX [Concomitant]
     Active Substance: FUROSEMIDE
  13. PLAQUENIL [Concomitant]
     Active Substance: HYDROXYCHLOROQUINE SULFATE
  14. VITAMIN D3 [Concomitant]
     Active Substance: CHOLECALCIFEROL
  15. VELETRI [Suspect]
     Active Substance: EPOPROSTENOL
     Dosage: 8 NG/KG, PER MIN
     Route: 042
  16. VELETRI [Suspect]
     Active Substance: EPOPROSTENOL
     Indication: PULMONARY HYPERTENSION
     Dosage: 30 NG/KG, PER MIN
     Route: 042

REACTIONS (31)
  - Death [Fatal]
  - Decreased appetite [Unknown]
  - Dizziness postural [Unknown]
  - Diarrhoea [Unknown]
  - Catheter site pain [Not Recovered/Not Resolved]
  - Application site irritation [Unknown]
  - Asthenia [Unknown]
  - Myalgia [Unknown]
  - Hypoaesthesia [Unknown]
  - Dental caries [Unknown]
  - Nausea [Unknown]
  - Application site erythema [Unknown]
  - Pneumonia [Unknown]
  - Swelling face [Unknown]
  - Pulmonary arterial hypertension [Unknown]
  - Hospitalisation [Unknown]
  - Flushing [Unknown]
  - Pain [Not Recovered/Not Resolved]
  - Dermatitis contact [Unknown]
  - Application site rash [Unknown]
  - Dyspnoea [Unknown]
  - Tooth extraction [Unknown]
  - Constipation [Unknown]
  - Headache [Unknown]
  - Pain in jaw [Unknown]
  - Fatigue [Unknown]
  - Pain in extremity [Not Recovered/Not Resolved]
  - Application site pruritus [Unknown]
  - Arthralgia [Unknown]
  - Dizziness [Unknown]
  - Application site hypersensitivity [Unknown]

NARRATIVE: CASE EVENT DATE: 20190329
